FAERS Safety Report 5087779-3 (Version None)
Quarter: 2006Q3

REPORT INFORMATION
  Report Type: 
  Country: None (occurrence: None)
  Receive Date: 20060824
  Receipt Date: 20060818
  Transmission Date: 20061208
  Serious: Yes (Other)
  Sender: FDA-Public Use
  Company Number: JP-ROCHE-459996

PATIENT
  Age: 62 Year
  Sex: Male

DRUGS (5)
  1. PANALDINE [Suspect]
     Indication: THROMBOSIS PROPHYLAXIS
     Route: 048
     Dates: start: 20060615, end: 20060701
  2. 8-HOUR BAYER [Concomitant]
     Route: 048
  3. SIGMART [Concomitant]
     Route: 048
  4. TAKEPRON [Concomitant]
     Route: 048
  5. WASSER V [Concomitant]

REACTIONS (3)
  - ERYTHEMA MULTIFORME [None]
  - EYELID OEDEMA [None]
  - FACE OEDEMA [None]
